FAERS Safety Report 23054145 (Version 1)
Quarter: 2023Q4

REPORT INFORMATION
  Report Type: Report from Study
  Country: US (occurrence: US)
  Receive Date: 20231011
  Receipt Date: 20231011
  Transmission Date: 20240110
  Serious: Yes (Hospitalization, Other)
  Sender: FDA-Public Use
  Company Number: US-MYLANLABS-2023M1106491

PATIENT
  Age: 64 Year
  Sex: Female
  Weight: 72.58 kg

DRUGS (1)
  1. YUPELRI [Suspect]
     Active Substance: REVEFENACIN
     Indication: Bronchitis chronic
     Dosage: 175 MICROGRAM PER 3 MILLILITRE, ONCE DAILY
     Route: 055
     Dates: start: 20230731, end: 20230912

REACTIONS (3)
  - Sinusitis [Unknown]
  - Epistaxis [Recovered/Resolved]
  - Mouth haemorrhage [Recovered/Resolved]

NARRATIVE: CASE EVENT DATE: 20230911
